FAERS Safety Report 6048314-6 (Version None)
Quarter: 2009Q1

REPORT INFORMATION
  Report Type: 
  Country: None (occurrence: None)
  Receive Date: 20090123
  Receipt Date: 20090112
  Transmission Date: 20090719
  Serious: Yes (Hospitalization)
  Sender: FDA-Public Use
  Company Number: US-PFIZER INC-2008158732

PATIENT
  Sex: Male
  Weight: 92.971 kg

DRUGS (1)
  1. ZYVOX [Suspect]
     Indication: NECROTISING COLITIS
     Dosage: 600 MG/300 ML
     Route: 042

REACTIONS (2)
  - BURNS SECOND DEGREE [None]
  - PRODUCT QUALITY ISSUE [None]
